FAERS Safety Report 11903666 (Version 2)
Quarter: 2016Q1

REPORT INFORMATION
  Report Type: Spontaneous
  Country: VN (occurrence: VN)
  Receive Date: 20160110
  Receipt Date: 20160119
  Transmission Date: 20160526
  Serious: Yes (Death, Hospitalization, Other)
  Sender: FDA-Public Use
  Company Number: VN-ROCHE-1691279

PATIENT
  Sex: Male

DRUGS (5)
  1. DOXORUBICIN [Suspect]
     Active Substance: DOXORUBICIN
     Indication: DIFFUSE LARGE B-CELL LYMPHOMA
     Dosage: LOW DOSE IN MINI-CHOP REGIMEN
     Route: 065
     Dates: start: 201512, end: 201512
  2. VINCRISTINE [Suspect]
     Active Substance: VINCRISTINE
     Indication: DIFFUSE LARGE B-CELL LYMPHOMA
     Dosage: LOW DOSE IN MINI-CHOP REGIMEN
     Route: 065
     Dates: start: 201512, end: 201512
  3. MABTHERA [Suspect]
     Active Substance: RITUXIMAB
     Indication: DIFFUSE LARGE B-CELL LYMPHOMA
     Route: 041
     Dates: start: 201512, end: 201512
  4. CYCLOPHOSPHAMIDE. [Suspect]
     Active Substance: CYCLOPHOSPHAMIDE
     Indication: DIFFUSE LARGE B-CELL LYMPHOMA
     Dosage: LOW DOSE IN MINI-CHOP REGIMEN
     Route: 065
     Dates: start: 201512, end: 201512
  5. PREDNISONE. [Suspect]
     Active Substance: PREDNISONE
     Indication: DIFFUSE LARGE B-CELL LYMPHOMA
     Dosage: LOW DOSE IN MINI-CHOP REGIMEN
     Route: 065
     Dates: start: 201512, end: 201512

REACTIONS (5)
  - Fatigue [Unknown]
  - Atrial fibrillation [Fatal]
  - Ventricular tachycardia [Fatal]
  - Headache [Unknown]
  - Hyponatraemia [Recovered/Resolved]
